FAERS Safety Report 8473081-6 (Version None)
Quarter: 2012Q2

REPORT INFORMATION
  Report Type: 
  Country: None (occurrence: None)
  Receive Date: 20120627
  Receipt Date: 20120619
  Transmission Date: 20120825
  Serious: Yes (Other)
  Sender: FDA-Public Use
  Company Number: FR-TEVA-344968ISR

PATIENT
  Age: 24 Year
  Sex: Female

DRUGS (2)
  1. LEELOO 0.1MG/0.02MG [Suspect]
     Indication: CONTRACEPTION
     Dosage: DOSE: LEVONORGESTREL 0.1MG/ETHINYLESTRADIOL 0.02MG
     Route: 048
     Dates: start: 20120201
  2. STRESAM [Interacting]
     Dosage: 3 DOSAGE FORMS;
     Route: 048
     Dates: start: 20120501, end: 20120602

REACTIONS (2)
  - ABNORMAL WITHDRAWAL BLEEDING [None]
  - DRUG INTERACTION [None]
